FAERS Safety Report 9914300 (Version 2)
Quarter: 2014Q1

REPORT INFORMATION
  Report Type: Spontaneous
  Country: DE (occurrence: None)
  Receive Date: 20140218
  Receipt Date: 20140311
  Transmission Date: 20141002
  Serious: Yes (Hospitalization)
  Sender: FDA-Public Use
  Company Number: DE-20140043

PATIENT
  Sex: Female

DRUGS (1)
  1. DOTAREM (GADOTERIC ACID) [Suspect]
     Indication: NUCLEAR MAGNETIC RESONANCE IMAGING
     Route: 042
     Dates: start: 20140124, end: 20140124

REACTIONS (2)
  - Swollen tongue [None]
  - Angioedema [None]
